FAERS Safety Report 23565889 (Version 1)
Quarter: 2024Q1

REPORT INFORMATION
  Report Type: Spontaneous
  Country: KR (occurrence: KR)
  Receive Date: 20240226
  Receipt Date: 20240226
  Transmission Date: 20240409
  Serious: Yes (Other)
  Sender: FDA-Public Use
  Company Number: KR-AMNEAL PHARMACEUTICALS-2024-AMRX-00601

PATIENT
  Age: 8 Year
  Sex: Female
  Weight: 34.5 kg

DRUGS (3)
  1. NAPROXEN [Suspect]
     Active Substance: NAPROXEN
     Indication: Pyrexia
     Dosage: 375 MILLIGRAM, 2X/DAY
     Route: 065
  2. NAPROXEN [Suspect]
     Active Substance: NAPROXEN
     Indication: Abdominal pain
  3. PIPERACILLIN SODIUM\TAZOBACTAM SODIUM [Concomitant]
     Active Substance: PIPERACILLIN SODIUM\TAZOBACTAM SODIUM
     Indication: Influenza like illness
     Dosage: 4.5 G (ADMINISTERED FROM DAY -13 TO DAY 1)
     Route: 042

REACTIONS (1)
  - Reye^s syndrome [Unknown]
